FAERS Safety Report 15719344 (Version 1)
Quarter: 2018Q4

REPORT INFORMATION
  Report Type: Spontaneous
  Country: FR (occurrence: FR)
  Receive Date: 20181213
  Receipt Date: 20181213
  Transmission Date: 20190205
  Serious: Yes (Hospitalization)
  Sender: FDA-Public Use
  Company Number: FR-PROVELL PHARMACEUTICALS-2060150

PATIENT
  Sex: Female
  Weight: 1 kg

DRUGS (4)
  1. QUETIAPINE. [Suspect]
     Active Substance: QUETIAPINE
  2. PANTOPRAZOLE [Suspect]
     Active Substance: PANTOPRAZOLE
  3. PARACETAMOL [Suspect]
     Active Substance: ACETAMINOPHEN
  4. EUTHYROX [Suspect]
     Active Substance: LEVOTHYROXINE SODIUM
     Indication: THYROID DISORDER

REACTIONS (2)
  - Myoclonus [Not Recovered/Not Resolved]
  - Premature baby [Not Recovered/Not Resolved]

NARRATIVE: CASE EVENT DATE: 20181123
